FAERS Safety Report 7887498-1 (Version None)
Quarter: 2011Q4

REPORT INFORMATION
  Report Type: 
  Country: None (occurrence: None)
  Receive Date: 20111103
  Receipt Date: 20111020
  Transmission Date: 20120403
  Serious: Yes (Other)
  Sender: FDA-Public Use
  Company Number: JP-BRISTOL-MYERS SQUIBB COMPANY-16158735

PATIENT
  Age: 53 Year
  Sex: Male

DRUGS (6)
  1. AMLODIPINE [Concomitant]
     Indication: HYPERTENSION
     Route: 048
     Dates: start: 20080712
  2. METFORMIN HCL [Suspect]
     Indication: DIABETES MELLITUS
     Route: 048
     Dates: start: 20110726
  3. BISOPROLOL FUMARATE [Concomitant]
     Indication: HYPERTENSION
     Dosage: MAIN HEART
     Route: 048
     Dates: start: 20010820
  4. METFORMIN HCL [Concomitant]
     Dosage: TOTAL-750MG.STOPPED.HAD RECEIVED ON 26JUL11.
     Dates: start: 20110726
  5. ALLOPURINOL [Concomitant]
     Indication: HYPERURICAEMIA
     Route: 048
     Dates: start: 20040603
  6. BEZAFIBRATE [Concomitant]
     Indication: DYSLIPIDAEMIA
     Dosage: PREVIOUS 2DF.10AUG1998-ONG
     Route: 048
     Dates: start: 19980810

REACTIONS (1)
  - URINARY RETENTION [None]
